FAERS Safety Report 18016331 (Version 2)
Quarter: 2020Q4

REPORT INFORMATION
  Report Type: Report from Study
  Country: None (occurrence: US)
  Receive Date: 20200714
  Receipt Date: 20201006
  Transmission Date: 20210113
  Serious: Yes (Other)
  Sender: FDA-Public Use
  Company Number: US-ABBVIE-19K-163-3210231-00

PATIENT
  Sex: Female

DRUGS (5)
  1. HUMIRA [Suspect]
     Active Substance: ADALIMUMAB
     Dosage: DAY 23
     Route: 058
     Dates: start: 2019, end: 2019
  2. HUMIRA [Suspect]
     Active Substance: ADALIMUMAB
     Indication: CROHN^S DISEASE
     Dosage: CITRATE FREE
     Route: 058
  3. HUMIRA [Suspect]
     Active Substance: ADALIMUMAB
     Indication: CROHN^S DISEASE
     Dosage: DAY 1
     Route: 058
     Dates: start: 20191104, end: 20191104
  4. HUMIRA [Suspect]
     Active Substance: ADALIMUMAB
  5. HUMIRA [Suspect]
     Active Substance: ADALIMUMAB
     Route: 058
     Dates: start: 20191209

REACTIONS (19)
  - Cholecystectomy [Recovering/Resolving]
  - Abdominal pain [Unknown]
  - Respiratory disorder [Unknown]
  - Colitis [Recovering/Resolving]
  - Abdominal pain [Recovering/Resolving]
  - Diarrhoea [Recovered/Resolved]
  - Hepatic neoplasm [Unknown]
  - Muscle spasticity [Recovering/Resolving]
  - Injection site erythema [Not Recovered/Not Resolved]
  - Constipation [Not Recovered/Not Resolved]
  - Loss of personal independence in daily activities [Unknown]
  - Abnormal faeces [Not Recovered/Not Resolved]
  - Illness [Recovered/Resolved]
  - Incision site pain [Unknown]
  - Abdominal pain upper [Recovering/Resolving]
  - Renal neoplasm [Unknown]
  - Nocturia [Unknown]
  - Diarrhoea [Unknown]
  - Ligament operation [Unknown]

NARRATIVE: CASE EVENT DATE: 2019
